FAERS Safety Report 15001386 (Version 2)
Quarter: 2018Q2

REPORT INFORMATION
  Report Type: Report from Study
  Country: ES (occurrence: ES)
  Receive Date: 20180612
  Receipt Date: 20180618
  Transmission Date: 20180711
  Serious: Yes (Hospitalization)
  Sender: FDA-Public Use
  Company Number: ES-PFIZER INC-2018234390

PATIENT
  Age: 62 Year
  Sex: Male
  Weight: 77 kg

DRUGS (10)
  1. LEUCOVORIN /00566701/ [Suspect]
     Active Substance: LEUCOVORIN
     Indication: COLORECTAL CANCER METASTATIC
     Dosage: 792 MG, CYCLIC
     Route: 041
     Dates: start: 20141013, end: 20141013
  2. 5-FU /00098801/ [Suspect]
     Active Substance: FLUOROURACIL
     Indication: COLORECTAL CANCER METASTATIC
     Dosage: 4752 MG, CYCLIC
     Route: 041
     Dates: start: 20141013, end: 20141013
  3. 5-FU /00098801/ [Suspect]
     Active Substance: FLUOROURACIL
     Dosage: 792 MG, CYCLIC
     Route: 040
     Dates: start: 20141013, end: 20141013
  4. 5-FU /00098801/ [Suspect]
     Active Substance: FLUOROURACIL
     Dosage: 3801 MG, CYCLIC
     Route: 041
     Dates: start: 20141113, end: 20141113
  5. LEUCOVORIN /00566701/ [Suspect]
     Active Substance: LEUCOVORIN
     Dosage: 633.6 MG, CYCLIC
     Route: 041
     Dates: start: 20141113, end: 20141113
  6. IRINOTECAN HCL [Suspect]
     Active Substance: IRINOTECAN HYDROCHLORIDE
     Dosage: 285.1 MG, CYCLIC
     Route: 041
     Dates: start: 20141113, end: 20141113
  7. 5-FU /00098801/ [Suspect]
     Active Substance: FLUOROURACIL
     Dosage: 633.6 MG, CYCLIC
     Route: 040
     Dates: start: 20141113, end: 20141113
  8. AFLIBERCEPT [Suspect]
     Active Substance: AFLIBERCEPT
     Indication: COLORECTAL CANCER METASTATIC
     Dosage: 320 MG, CYCLIC
     Route: 041
     Dates: start: 20141013, end: 20141013
  9. AFLIBERCEPT [Suspect]
     Active Substance: AFLIBERCEPT
     Dosage: 320 MG, CYCLIC
     Route: 041
     Dates: start: 20141113, end: 20141113
  10. IRINOTECAN HCL [Suspect]
     Active Substance: IRINOTECAN HYDROCHLORIDE
     Indication: COLORECTAL CANCER METASTATIC
     Dosage: 356.4 MG, CYCLIC
     Route: 041
     Dates: start: 20141013, end: 20141013

REACTIONS (6)
  - Hepatotoxicity [Recovered/Resolved]
  - Stomatitis [Recovered/Resolved]
  - Deep vein thrombosis [Recovered/Resolved]
  - Neutropenia [Recovered/Resolved]
  - Oedema peripheral [Recovered/Resolved]
  - Staphylococcal infection [Recovered/Resolved]

NARRATIVE: CASE EVENT DATE: 20141023
